FAERS Safety Report 24050941 (Version 1)
Quarter: 2024Q3

REPORT INFORMATION
  Report Type: Spontaneous
  Country: MA (occurrence: MA)
  Receive Date: 20240704
  Receipt Date: 20240704
  Transmission Date: 20241017
  Serious: Yes (Hospitalization, Other)
  Sender: INGENUS
  Company Number: MA-INGENUS PHARMACEUTICALS, LLC-2024INF000030

PATIENT
  Age: 45 Year
  Sex: Female

DRUGS (2)
  1. CABERGOLINE [Suspect]
     Active Substance: CABERGOLINE
     Indication: Prolactin-producing pituitary tumour
     Dosage: 0.5 MILLIGRAM TWICE WEEKLY
     Route: 065
  2. CABERGOLINE [Suspect]
     Active Substance: CABERGOLINE
     Dosage: 0.5 MILLIGRAM PER WEEK
     Route: 065

REACTIONS (1)
  - Neuroendocrine tumour [Recovered/Resolved]
